FAERS Safety Report 11336450 (Version 2)
Quarter: 2015Q3

REPORT INFORMATION
  Report Type: Spontaneous
  Country: DE (occurrence: DE)
  Receive Date: 20150804
  Receipt Date: 20150813
  Transmission Date: 20151125
  Serious: Yes (Hospitalization, Other)
  Sender: FDA-Public Use
  Company Number: DE-VIIV HEALTHCARE LIMITED-DE2015GSK097610

PATIENT
  Sex: Male

DRUGS (1)
  1. TRIUMEQ [Suspect]
     Active Substance: ABACAVIR SULFATE\DOLUTEGRAVIR SODIUM\LAMIVUDINE
     Indication: HIV INFECTION
     Dosage: 950 MG, QD
     Route: 048
     Dates: start: 20150618, end: 20150703

REACTIONS (5)
  - Hepatitis cholestatic [Unknown]
  - Abdominal pain [Unknown]
  - Hepatic enzyme increased [Unknown]
  - Pancreatitis acute [Recovering/Resolving]
  - Burkitt^s lymphoma [Unknown]

NARRATIVE: CASE EVENT DATE: 20150703
